FAERS Safety Report 4447251-8 (Version None)
Quarter: 2004Q3

REPORT INFORMATION
  Report Type: 
  Country: None (occurrence: None)
  Receive Date: 20040908
  Receipt Date: 20040908
  Transmission Date: 20050211
  Serious: Yes (Hospitalization)
  Sender: FDA-Public Use
  Company Number: None

PATIENT
  Age: 81 Year
  Sex: Male

DRUGS (12)
  1. TAMSULOSIN [Suspect]
     Indication: BENIGN PROSTATIC HYPERPLASIA
     Dosage: 0.4 MG QD
     Dates: start: 20040429
  2. CLONIDINE HCL [Suspect]
     Indication: HYPERTENSION
     Dosage: 0.1 MG BID
     Dates: start: 20040401
  3. METOPROLOL [Suspect]
     Indication: HYPERTENSION
     Dosage: 25 MG QD
     Dates: start: 20001001
  4. LORATADINE [Concomitant]
  5. FOSINOPRIL SODIUM [Concomitant]
  6. CLONIDINE HCL [Concomitant]
  7. HYDROCHLOROTHIAZIDE [Concomitant]
  8. DICLOFENAC SODIUM [Concomitant]
  9. ZOCOR [Concomitant]
  10. ALENDROATE [Concomitant]
  11. OSCAL [Concomitant]
  12. ASPIRIN [Concomitant]

REACTIONS (2)
  - HYPERHIDROSIS [None]
  - NAUSEA [None]
